FAERS Safety Report 19979130 (Version 1)
Quarter: 2021Q4

REPORT INFORMATION
  Report Type: Spontaneous
  Country: US (occurrence: US)
  Receive Date: 20211021
  Receipt Date: 20211021
  Transmission Date: 20220303
  Serious: Yes (Other)
  Sender: FDA-Public Use
  Company Number: None

PATIENT
  Age: 58 Year
  Sex: Female

DRUGS (7)
  1. LIDOCAINE HYDROCHLORIDE [Suspect]
     Active Substance: LIDOCAINE HYDROCHLORIDE
     Indication: Lumbar radiculopathy
     Dosage: ?          OTHER FREQUENCY:ONCE WEEKLY;
     Route: 058
     Dates: start: 20211007, end: 20211007
  2. LIDOCAINE HYDROCHLORIDE [Suspect]
     Active Substance: LIDOCAINE HYDROCHLORIDE
     Indication: Back pain
  3. MANNITOL [Suspect]
     Active Substance: MANNITOL
     Indication: Lumbar radiculopathy
     Dosage: ?          OTHER FREQUENCY:WEEKLY;
     Route: 058
     Dates: start: 20211007, end: 20211007
  4. MANNITOL [Suspect]
     Active Substance: MANNITOL
     Indication: Back pain
  5. MANNITOL [Suspect]
     Active Substance: MANNITOL
     Indication: Sciatica
  6. LIDOCAINE [Concomitant]
     Active Substance: LIDOCAINE
     Dates: start: 20211007, end: 20211007
  7. MANNITOL [Concomitant]
     Active Substance: MANNITOL
     Dates: start: 20211007, end: 20211007

REACTIONS (1)
  - Injection site pain [None]

NARRATIVE: CASE EVENT DATE: 20211007
